FAERS Safety Report 6058663-3 (Version None)
Quarter: 2009Q1

REPORT INFORMATION
  Report Type: 
  Country: None (occurrence: None)
  Receive Date: 20090130
  Receipt Date: 20090120
  Transmission Date: 20090719
  Serious: Yes (Death, Congenital Anomaly)
  Sender: FDA-Public Use
  Company Number: FR-PFIZER INC-2009159152

PATIENT

DRUGS (1)
  1. ZITHROMAX [Suspect]
     Route: 064

REACTIONS (4)
  - ANORECTAL DISORDER [None]
  - DRUG EXPOSURE DURING PREGNANCY [None]
  - FOETAL MALFORMATION [None]
  - MULTIPLE CONGENITAL ABNORMALITIES [None]
